FAERS Safety Report 16835047 (Version 3)
Quarter: 2020Q3

REPORT INFORMATION
  Report Type: Spontaneous
  Country: US (occurrence: US)
  Receive Date: 20190920
  Receipt Date: 20200901
  Transmission Date: 20201102
  Serious: No
  Sender: FDA-Public Use
  Company Number: US-SA-2019SA262211

PATIENT

DRUGS (16)
  1. NITROFURANTOIN [NITROFURANTOIN;NITROFURANTOIN MONOHYDRATE] [Concomitant]
  2. GABAPENTIN. [Concomitant]
     Active Substance: GABAPENTIN
  3. CEREZYME [Suspect]
     Active Substance: IMIGLUCERASE
     Indication: GAUCHER^S DISEASE
     Dosage: 3600 U, QOW
     Route: 041
     Dates: start: 19940728
  4. STERILE WATER [Concomitant]
     Active Substance: WATER
  5. OXYBUTYNIN. [Concomitant]
     Active Substance: OXYBUTYNIN CHLORIDE
  6. CEREZYME [Suspect]
     Active Substance: IMIGLUCERASE
     Dosage: 3600 U, QOW
     Route: 041
  7. SALINE [SODIUM CHLORIDE] [Concomitant]
     Active Substance: SODIUM CHLORIDE
  8. EPINEPHRINE [EPINEPHRINE HYDROCHLORIDE] [Concomitant]
  9. OXYCODONE [Concomitant]
     Active Substance: OXYCODONE
  10. TYLENOL [Concomitant]
     Active Substance: ACETAMINOPHEN
  11. MULTIVITAMINS [VITAMINS NOS] [Concomitant]
     Active Substance: VITAMINS
  12. CEPHALEXIN [CEFALEXIN] [Concomitant]
     Active Substance: CEPHALEXIN
  13. METHADONE [Concomitant]
     Active Substance: METHADONE HYDROCHLORIDE
  14. VITAMIN C [Concomitant]
     Active Substance: ASCORBIC ACID
  15. PEPCID [Concomitant]
     Active Substance: FAMOTIDINE
  16. FAMOTIDINE. [Concomitant]
     Active Substance: FAMOTIDINE

REACTIONS (2)
  - Herpes zoster [Not Recovered/Not Resolved]
  - Malaise [Unknown]

NARRATIVE: CASE EVENT DATE: 2019
